FAERS Safety Report 10248685 (Version 1)
Quarter: 2014Q2

REPORT INFORMATION
  Report Type: Spontaneous
  Country: DE (occurrence: None)
  Receive Date: 20140618
  Receipt Date: 20140618
  Transmission Date: 20141212
  Serious: Yes (Death, Other)
  Sender: FDA-Public Use
  Company Number: 2014AMD00005

PATIENT
  Sex: 0

DRUGS (6)
  1. HYDROCORTISONE [Suspect]
     Indication: NEONATAL RESPIRATORY DISTRESS SYNDROME
  2. HYDROCORTISONE [Suspect]
     Indication: RESPIRATORY FAILURE
  3. DEXAMETHASONE (DEXAMETHASONE) [Suspect]
     Indication: NEONATAL RESPIRATORY DISTRESS SYNDROME
  4. DEXAMETHASONE (DEXAMETHASONE) [Suspect]
     Indication: RESPIRATORY FAILURE
  5. INSULIN (INSULIN) [Suspect]
  6. UNSPECIFED INOTROPES (UNSPECIFIED INOTROPES) [Suspect]

REACTIONS (7)
  - Death neonatal [None]
  - Hypertrophic cardiomyopathy [None]
  - Thrombosis [None]
  - Neonatal respiratory distress syndrome [None]
  - Hypotension [None]
  - Bronchopulmonary dysplasia [None]
  - Sepsis [None]
